FAERS Safety Report 24211001 (Version 2)
Quarter: 2024Q4

REPORT INFORMATION
  Report Type: Report from Study
  Country: AU (occurrence: AU)
  Receive Date: 20240814
  Receipt Date: 20241104
  Transmission Date: 20250115
  Serious: Yes (Hospitalization, Other)
  Sender: NOVARTIS
  Company Number: AU-002147023-NVSC2024AU025905

PATIENT
  Sex: Female

DRUGS (2)
  1. COSENTYX [Suspect]
     Active Substance: SECUKINUMAB
     Indication: Psoriatic arthropathy
     Dosage: 150 MG, QMO
     Route: 058
     Dates: start: 20231116
  2. COSENTYX [Suspect]
     Active Substance: SECUKINUMAB
     Dosage: UNK-ONGOING
     Route: 058

REACTIONS (10)
  - Pneumonia [Recovering/Resolving]
  - Atrial fibrillation [Unknown]
  - Immunosuppression [Unknown]
  - Colitis microscopic [Unknown]
  - Pain [Unknown]
  - Sleep disorder [Unknown]
  - Nausea [Unknown]
  - C-reactive protein increased [Unknown]
  - Gastrointestinal tract irritation [Unknown]
  - Diarrhoea [Unknown]
